FAERS Safety Report 10687756 (Version 1)
Quarter: 2014Q4

REPORT INFORMATION
  Report Type: Spontaneous
  Country: US (occurrence: None)
  Receive Date: 20141231
  Receipt Date: 20141231
  Transmission Date: 20150529
  Serious: No
  Sender: FDA-Public Use
  Company Number: None

PATIENT
  Age: 3 Year
  Sex: Female
  Weight: 16.78 kg

DRUGS (2)
  1. QVAR [Suspect]
     Active Substance: BECLOMETHASONE DIPROPIONATE
     Indication: ASTHMA
     Dosage: 2 PUFFS
     Route: 055
     Dates: start: 20141213, end: 20141230
  2. QVAR [Suspect]
     Active Substance: BECLOMETHASONE DIPROPIONATE
     Indication: VIRAL INFECTION
     Dosage: 2 PUFFS
     Route: 055
     Dates: start: 20141213, end: 20141230

REACTIONS (2)
  - Dermatitis [None]
  - Blepharitis [None]

NARRATIVE: CASE EVENT DATE: 20141216
